FAERS Safety Report 6333599-9 (Version None)
Quarter: 2009Q3

REPORT INFORMATION
  Report Type: 
  Country: None (occurrence: None)
  Receive Date: 20090829
  Receipt Date: 20090706
  Transmission Date: 20100115
  Serious: No
  Sender: FDA-Public Use
  Company Number: US-ABBOTT-09P-163-0562930-00

PATIENT
  Sex: Male
  Weight: 170.25 kg

DRUGS (13)
  1. SIMCOR [Suspect]
     Indication: BLOOD CHOLESTEROL INCREASED
     Dosage: 500/20 MG
     Route: 048
     Dates: start: 20080101
  2. ACTOS [Concomitant]
     Indication: DIABETES MELLITUS
     Route: 048
  3. METOPROLOL [Concomitant]
     Indication: HYPERTENSION
     Route: 048
  4. HYDROCHLOROTHIAZIDE [Concomitant]
     Indication: DRUG USE FOR UNKNOWN INDICATION
  5. FLOMAX [Concomitant]
     Indication: BENIGN PROSTATIC HYPERPLASIA
  6. ALLOPURINOL [Concomitant]
     Indication: GOUT
     Route: 048
  7. ASPIRIN [Concomitant]
     Indication: DRUG USE FOR UNKNOWN INDICATION
  8. GLIPIZIDE [Concomitant]
     Indication: DIABETES MELLITUS
     Route: 048
  9. FISH OIL [Concomitant]
     Indication: MEDICAL DIET
  10. RAMIPRIL [Concomitant]
     Indication: HYPERTENSION
     Route: 048
  11. TORSEMIDE [Concomitant]
     Indication: DRUG USE FOR UNKNOWN INDICATION
  12. K-DUR [Concomitant]
     Indication: DRUG USE FOR UNKNOWN INDICATION
  13. LOVAZA [Concomitant]
     Indication: MEDICAL DIET

REACTIONS (4)
  - CONSTIPATION [None]
  - DRUG DOSE OMISSION [None]
  - HAEMORRHOIDAL HAEMORRHAGE [None]
  - HOT FLUSH [None]
